FAERS Safety Report 4776389-0 (Version None)
Quarter: 2005Q3

REPORT INFORMATION
  Report Type: 
  Country: None (occurrence: None)
  Receive Date: 20050921
  Receipt Date: 20050908
  Transmission Date: 20060218
  Serious: Yes (Hospitalization)
  Sender: FDA-Public Use
  Company Number: ST-2005-008570

PATIENT
  Age: 77 Year
  Sex: Male

DRUGS (4)
  1. OLMETEC [Suspect]
     Indication: HYPERTENSION
     Dosage: 20 MG QD, PO
     Route: 048
     Dates: start: 20050630, end: 20050708
  2. BEROTEC [Concomitant]
  3. GASTER [Concomitant]
  4. MUCOSTA [Concomitant]

REACTIONS (2)
  - BLOOD PRESSURE DECREASED [None]
  - LOSS OF CONSCIOUSNESS [None]
